FAERS Safety Report 23215979 (Version 1)
Quarter: 2023Q4

REPORT INFORMATION
  Report Type: Spontaneous
  Country: ID (occurrence: ID)
  Receive Date: 20231122
  Receipt Date: 20231122
  Transmission Date: 20240109
  Serious: Yes (Other)
  Sender: FDA-Public Use
  Company Number: ID-CELLTRION INC.-2023ID021510

PATIENT

DRUGS (1)
  1. TRASTUZUMAB [Suspect]
     Active Substance: TRASTUZUMAB
     Indication: Invasive breast carcinoma

REACTIONS (4)
  - Breast cancer [Unknown]
  - Skin lesion [Unknown]
  - Disease recurrence [Unknown]
  - Disease progression [Unknown]

NARRATIVE: CASE EVENT DATE: 20170101
